FAERS Safety Report 11390028 (Version 1)
Quarter: 2015Q3

REPORT INFORMATION
  Report Type: Report from Study
  Country: NL (occurrence: NL)
  Receive Date: 20150818
  Receipt Date: 20150818
  Transmission Date: 20151125
  Serious: Yes (Other)
  Sender: FDA-Public Use
  Company Number: NL-AMGEN-NLDSL2015082965

PATIENT
  Age: 68 Year
  Sex: Female

DRUGS (1)
  1. XGEVA [Suspect]
     Active Substance: DENOSUMAB
     Indication: PROPHYLAXIS
     Dosage: 120 MG, Q4WK
     Route: 058

REACTIONS (3)
  - Back pain [Unknown]
  - Ascites [Unknown]
  - Abdominal distension [Unknown]

NARRATIVE: CASE EVENT DATE: 20150811
